FAERS Safety Report 8619887-1 (Version None)
Quarter: 2012Q3

REPORT INFORMATION
  Report Type: 
  Country: None (occurrence: None)
  Receive Date: 20120824
  Receipt Date: 20120820
  Transmission Date: 20120928
  Serious: Yes (Life-Threatening, Hospitalization, Other)
  Sender: FDA-Public Use
  Company Number: US-CELGENEUS-163-21880-12073029

PATIENT
  Sex: Female

DRUGS (21)
  1. LEVOTHYROXINE SODIUM [Concomitant]
     Dosage: 50 MICROGRAM
     Route: 048
     Dates: start: 20081118
  2. CIPROFLOXACIN HCL [Concomitant]
     Dosage: 1000 MILLIGRAM
     Route: 048
     Dates: start: 20120515, end: 20120723
  3. URECHOLINE [Concomitant]
     Dosage: 6.6667 MILLIGRAM
     Route: 048
     Dates: start: 20120730
  4. METFORMIN HCL [Concomitant]
     Dosage: 1000 MILLIGRAM
     Route: 048
     Dates: start: 20120730
  5. PROTONIX [Concomitant]
     Dosage: 40 MILLIGRAM
     Route: 048
     Dates: start: 20020913, end: 20120730
  6. NITROGLYCERIN [Concomitant]
     Indication: CHEST PAIN
     Dosage: .4 MILLIGRAM
     Route: 060
     Dates: start: 20031025
  7. OSCAL WITH VITAMIN D [Concomitant]
     Dosage: 500-200MG UNIT
     Route: 048
     Dates: start: 20081118
  8. SUCRALFATE [Concomitant]
     Dosage: 4 GRAM
     Route: 065
     Dates: start: 20120730
  9. LOSARTAN POTASSIUM [Concomitant]
     Dosage: 25 MILLIGRAM
     Route: 048
     Dates: start: 20120730
  10. REVLIMID [Suspect]
     Dosage: 10 MILLIGRAM
     Route: 048
     Dates: start: 20101214
  11. REVLIMID [Suspect]
     Dosage: 10 MILLIGRAM
     Route: 048
     Dates: start: 20110311
  12. OSCAL WITH VITAMIN D [Concomitant]
     Dosage: 500-200MG UNIT
     Route: 048
     Dates: start: 20120730
  13. NORVASC [Concomitant]
     Dosage: 5 MILLIGRAM
     Route: 048
     Dates: start: 20120730
  14. FERROUS SULFATE TAB [Concomitant]
     Dosage: 1300 MILLIGRAM
     Route: 048
     Dates: start: 20100302, end: 20100525
  15. JANUMET [Concomitant]
     Dosage: 50-500MG
     Route: 048
     Dates: start: 20081118, end: 20111216
  16. SUCRALFATE [Concomitant]
     Dosage: 4 GRAM
     Route: 065
     Dates: start: 20020913, end: 20101214
  17. REVLIMID [Suspect]
     Dosage: 10 MILLIGRAM
     Route: 048
     Dates: start: 20120723
  18. COUMDIN [Concomitant]
     Dosage: 2 MILLIGRAM
     Route: 048
     Dates: start: 20111216, end: 20120723
  19. TRAZODONE HCL [Concomitant]
     Indication: INSOMNIA
     Dosage: 50 MILLIGRAM
     Route: 048
     Dates: start: 20101214, end: 20110314
  20. ASPIRIN [Concomitant]
     Dosage: 81 MILLIGRAM
     Route: 048
     Dates: start: 20100525, end: 20120210
  21. OMEPRAZOLE [Concomitant]
     Dosage: 20 MILLIGRAM
     Route: 048
     Dates: start: 20120730

REACTIONS (2)
  - SUBDURAL HAEMATOMA [None]
  - FALL [None]
